APPROVED DRUG PRODUCT: ALREX
Active Ingredient: LOTEPREDNOL ETABONATE
Strength: 0.2%
Dosage Form/Route: SUSPENSION/DROPS;OPHTHALMIC
Application: N020803 | Product #001 | TE Code: AB
Applicant: BAUSCH AND LOMB INC
Approved: Mar 9, 1998 | RLD: Yes | RS: Yes | Type: RX